FAERS Safety Report 4478529-X (Version None)
Quarter: 2004Q4

REPORT INFORMATION
  Report Type: 
  Country: None (occurrence: None)
  Receive Date: 20041013
  Receipt Date: 20040930
  Transmission Date: 20050328
  Serious: Yes (Life-Threatening, Disabling)
  Sender: FDA-Public Use
  Company Number: 04H-087-0273805-00

PATIENT
  Age: 60 Year
  Sex: Male
  Weight: 73.4 kg

DRUGS (10)
  1. PRECEDEX [Suspect]
     Indication: SEDATIVE THERAPY
     Dosage: 0.3 MCG/KG/HR, INTRAVENOUS
     Route: 042
     Dates: start: 20040903, end: 20040904
  2. MIDAZOLAM HCL [Suspect]
     Indication: SEDATION
     Dosage: 5MG/HR, INTRAVENOUS
     Route: 042
     Dates: start: 20040901, end: 20040904
  3. ALPROSTADIL [Suspect]
     Indication: PROMOTION OF PERIPHERAL CIRCULATION
     Dosage: 23 UG/HR, INTRAVENOUS
     Route: 042
     Dates: start: 20040901, end: 20040904
  4. ACETATED RINGER'S SOLUTION (VEEN F) [Concomitant]
  5. MIXED AMINO ACID, CARBOHYDRATE, ELECTROLYTE, VITAMIN COMBINED DRUG [Concomitant]
  6. MAINTENANCE MEDIUM WITH GLUCOSE (PHYSIO 35) [Concomitant]
  7. DOPAMINE HYDROCHLORIDE [Concomitant]
  8. CEFAZOLIN SODIUM [Concomitant]
  9. FOSFOMYCIN SODIUM [Concomitant]
  10. MORPHINE [Concomitant]

REACTIONS (3)
  - BLOOD PRESSURE ABNORMAL [None]
  - CEREBRAL INFARCTION [None]
  - HEMIPARESIS [None]
